FAERS Safety Report 5166014-1 (Version None)
Quarter: 2006Q4

REPORT INFORMATION
  Report Type: 
  Country: None (occurrence: None)
  Receive Date: 20061128
  Receipt Date: 20061121
  Transmission Date: 20070319
  Serious: Yes (Other)
  Sender: FDA-Public Use
  Company Number: S06-USA-04932-01

PATIENT

DRUGS (2)
  1. LEXAPRO [Suspect]
     Indication: DRUG USE FOR UNKNOWN INDICATION
  2. REQUIP [Suspect]
     Indication: RESTLESS LEGS SYNDROME
     Dosage: 2 MG QD

REACTIONS (3)
  - AGITATION [None]
  - DRUG INTERACTION [None]
  - SEROTONIN SYNDROME [None]
